FAERS Safety Report 23507301 (Version 1)
Quarter: 2024Q1

REPORT INFORMATION
  Report Type: Report from Study
  Country: CA (occurrence: CA)
  Receive Date: 20240209
  Receipt Date: 20240209
  Transmission Date: 20240409
  Serious: Yes (Other)
  Sender: FDA-Public Use
  Company Number: CA-JNJFOC-20240185752

PATIENT
  Age: 59 Year
  Sex: Female

DRUGS (2)
  1. BALVERSA [Suspect]
     Active Substance: ERDAFITINIB
     Indication: Bladder cancer
     Dosage: 3MG DAILY THE REST OF THE WEEK
     Route: 048
  2. BALVERSA [Suspect]
     Active Substance: ERDAFITINIB
     Dosage: ONCE A WEEK ON WEDNESDAYS ONLY
     Route: 048

REACTIONS (1)
  - Expired product administered [Unknown]

NARRATIVE: CASE EVENT DATE: 20240117
